FAERS Safety Report 14671450 (Version 2)
Quarter: 2018Q2

REPORT INFORMATION
  Report Type: Report from Study
  Country: US (occurrence: US)
  Receive Date: 20180323
  Receipt Date: 20180412
  Transmission Date: 20180711
  Serious: Yes (Hospitalization, Other)
  Sender: FDA-Public Use
  Company Number: US-BIOGEN-2018BI00545179

PATIENT
  Age: 51 Year
  Sex: Female

DRUGS (2)
  1. ZINBRYTA [Suspect]
     Active Substance: DACLIZUMAB
     Indication: MULTIPLE SCLEROSIS
     Route: 058
     Dates: start: 20171116, end: 201802
  2. BACLOFEN. [Concomitant]
     Active Substance: BACLOFEN
     Indication: INCONTINENCE
     Route: 065
     Dates: start: 20171010

REACTIONS (2)
  - Urinary tract infection [Unknown]
  - Suicidal ideation [Recovered/Resolved]

NARRATIVE: CASE EVENT DATE: 20171117
